FAERS Safety Report 7287114-6 (Version None)
Quarter: 2011Q1

REPORT INFORMATION
  Report Type: 
  Country: None (occurrence: None)
  Receive Date: 20110211
  Receipt Date: 20110201
  Transmission Date: 20110831
  Serious: Yes (Hospitalization, Other)
  Sender: FDA-Public Use
  Company Number: KP-PAR PHARMACEUTICAL, INC-2010SCPR000642

PATIENT

DRUGS (7)
  1. FLUOXETINE [Suspect]
     Indication: OBESITY
     Dosage: 10 MG, BID
     Route: 048
  2. EPINEPHRINE [Suspect]
     Indication: MESOTHERAPY
     Dosage: ONE INJECTION ONCE A DAY
     Route: 058
  3. CAFFEINE [Suspect]
     Indication: OBESITY
     Dosage: 50 MG, BID
     Route: 048
  4. EPHEDRINE HYDROCHLORIDE [Suspect]
     Indication: OBESITY
     Dosage: 10 MG, BID
     Route: 048
  5. AMINOPHYLLINE [Suspect]
     Indication: MESOTHERAPY
     Dosage: ONE INJECTION ONCE A DAY
     Route: 058
  6. LIDOCAINE [Suspect]
     Indication: MESOTHERAPY
     Dosage: ONE INJECTION ONCE A DAY
     Route: 058
  7. TEA, GREEN [Suspect]
     Indication: OBESITY
     Dosage: 250 MG, BID
     Route: 048

REACTIONS (2)
  - COLITIS ISCHAEMIC [None]
  - DRUG INTERACTION [None]
